FAERS Safety Report 23040539 (Version 2)
Quarter: 2024Q1

REPORT INFORMATION
  Report Type: Spontaneous
  Country: US (occurrence: US)
  Receive Date: 20231006
  Receipt Date: 20240204
  Transmission Date: 20240410
  Serious: Yes (Other)
  Sender: FDA-Public Use
  Company Number: US-BRISTOL-MYERS SQUIBB COMPANY-2023-139747

PATIENT
  Age: 76 Year
  Sex: Female

DRUGS (2)
  1. IDHIFA [Suspect]
     Active Substance: ENASIDENIB MESYLATE
     Indication: Myelodysplastic syndrome with ringed sideroblasts
     Dosage: TAKE 1 TABLET BY MOUTH EVERY DAY WITH OR WITHOUT FOOD AT THE SAME TIME DAILY SWALLOW WHOLE WITH 8OZ
     Route: 048
  2. IDHIFA [Suspect]
     Active Substance: ENASIDENIB MESYLATE
     Indication: Iron metabolism disorder

REACTIONS (8)
  - Drug ineffective for unapproved indication [Unknown]
  - Dyspnoea [Unknown]
  - Dehydration [Unknown]
  - Off label use [Unknown]
  - Chronic kidney disease [Unknown]
  - Oral candidiasis [Not Recovered/Not Resolved]
  - Stomatitis [Not Recovered/Not Resolved]
  - Weight decreased [Not Recovered/Not Resolved]
